FAERS Safety Report 8409912-5 (Version None)
Quarter: 2012Q2

REPORT INFORMATION
  Report Type: 
  Country: None (occurrence: None)
  Receive Date: 20120605
  Receipt Date: 20120531
  Transmission Date: 20120825
  Serious: Yes (Life-Threatening, Hospitalization, Other)
  Sender: FDA-Public Use
  Company Number: FR-BRISTOL-MYERS SQUIBB COMPANY-16442469

PATIENT
  Age: 84 Year
  Sex: Male

DRUGS (6)
  1. PERINDOPRIL ERBUMINE [Concomitant]
     Dosage: FORM: FILM-COATED TABLET
     Route: 048
     Dates: start: 20100101
  2. MEDIATENSYL [Concomitant]
     Dosage: BEFORE JUN 2005. FORM: CAPS
     Route: 048
     Dates: start: 20050101
  3. PRAVASTATIN SODIUM [Concomitant]
     Route: 048
     Dates: start: 20100101
  4. COUMADIN [Suspect]
     Dosage: BEFORE JUN 2005. INTERRUPTED ON 26JAN12, GIVEN AGAIN ON 31JAN12
     Route: 048
     Dates: start: 20050101
  5. FUROSEMIDE [Concomitant]
     Route: 048
     Dates: start: 20051101
  6. NICARDIPINE HYDROCHLORIDE [Concomitant]
     Dosage: EXTENDED RELEASE CAPSULE
     Dates: start: 20080701

REACTIONS (5)
  - GASTRIC ULCER HAEMORRHAGE [None]
  - GRAND MAL CONVULSION [None]
  - RENAL FAILURE ACUTE [None]
  - INTERNATIONAL NORMALISED RATIO INCREASED [None]
  - HAEMORRHAGIC ANAEMIA [None]
